FAERS Safety Report 18127179 (Version 2)
Quarter: 2020Q3

REPORT INFORMATION
  Report Type: Spontaneous
  Country: US (occurrence: US)
  Receive Date: 20200810
  Receipt Date: 20200818
  Transmission Date: 20201103
  Serious: Yes (Other)
  Sender: FDA-Public Use
  Company Number: US-SUN PHARMACEUTICAL INDUSTRIES LTD-2020R1-255809

PATIENT
  Sex: Male
  Weight: 68.48 kg

DRUGS (4)
  1. DOXYCYCLINE. [Suspect]
     Active Substance: DOXYCYCLINE
     Indication: URINARY TRACT INFECTION
     Dosage: 100 MILLIGRAM, BID
     Route: 065
     Dates: start: 20200316, end: 20200401
  2. SPIRIVA ALBUTEROL SULPHATE [Concomitant]
     Indication: URINARY TRACT INFECTION
     Dosage: UNK
     Route: 065
  3. XELJANZ [Concomitant]
     Active Substance: TOFACITINIB CITRATE
     Indication: URINARY TRACT INFECTION
     Dosage: 5 MILLIGRAM, BID
     Route: 065
     Dates: start: 201909
  4. DICLOFENAC [Concomitant]
     Active Substance: DICLOFENAC
     Indication: URINARY TRACT INFECTION
     Dosage: 75 MILLIGRAM, BID
     Route: 065
     Dates: start: 20200422, end: 20200522

REACTIONS (2)
  - Eye disorder [Not Recovered/Not Resolved]
  - Blindness [Not Recovered/Not Resolved]
